FAERS Safety Report 5705080-9 (Version None)
Quarter: 2008Q2

REPORT INFORMATION
  Report Type: 
  Country: None (occurrence: None)
  Receive Date: 20080410
  Receipt Date: 20080401
  Transmission Date: 20081010
  Serious: Yes (Other)
  Sender: FDA-Public Use
  Company Number: 2008SP002573

PATIENT
  Age: 40 Year
  Sex: Female

DRUGS (5)
  1. CLARITIN [Suspect]
     Indication: COUGH
     Dosage: ; PO
     Route: 048
     Dates: start: 20080131
  2. CLARITIN [Suspect]
     Indication: RHINORRHOEA
     Dosage: ; PO
     Route: 048
     Dates: start: 20080131
  3. CLARITIN [Suspect]
     Indication: SNEEZING
     Dosage: ; PO
     Route: 048
     Dates: start: 20080131
  4. XANAX [Concomitant]
  5. PREVACID [Concomitant]

REACTIONS (3)
  - CONVULSION [None]
  - OCULAR HYPERAEMIA [None]
  - PALPITATIONS [None]
